FAERS Safety Report 7353021-3 (Version None)
Quarter: 2011Q1

REPORT INFORMATION
  Report Type: 
  Country: None (occurrence: None)
  Receive Date: 20110315
  Receipt Date: 20110307
  Transmission Date: 20110831
  Serious: Yes (Other)
  Sender: FDA-Public Use
  Company Number: A0916411A

PATIENT
  Age: 48 Year
  Sex: Female

DRUGS (4)
  1. ZOMETA [Suspect]
  2. NEXIUM [Concomitant]
  3. TYKERB [Suspect]
     Dosage: 1000MG PER DAY
  4. HERCEPTIN [Suspect]

REACTIONS (4)
  - FATIGUE [None]
  - HAEMATOCHEZIA [None]
  - PALMAR-PLANTAR ERYTHRODYSAESTHESIA SYNDROME [None]
  - DYSPEPSIA [None]
